FAERS Safety Report 5074016-9 (Version None)
Quarter: 2006Q3

REPORT INFORMATION
  Report Type: 
  Country: None (occurrence: None)
  Receive Date: 20060808
  Receipt Date: 20060501
  Transmission Date: 20061208
  Serious: No
  Sender: FDA-Public Use
  Company Number: US-AMGEN-KDL178429

PATIENT
  Sex: Female
  Weight: 51.3 kg

DRUGS (9)
  1. PROCRIT [Suspect]
     Indication: ANAEMIA OF MALIGNANT DISEASE
     Dates: start: 20060301
  2. GLUCOPHAGE [Concomitant]
  3. AMARYL [Concomitant]
  4. PRAVACHOL [Concomitant]
  5. LEVOXYL [Concomitant]
  6. DIOVAN [Concomitant]
  7. LABETALOL HCL [Concomitant]
  8. HYDROCHLOROTHIAZIDE [Concomitant]
  9. BONIVA [Concomitant]

REACTIONS (3)
  - ABDOMINAL DISCOMFORT [None]
  - DIARRHOEA [None]
  - MUSCLE SPASMS [None]
